FAERS Safety Report 10553679 (Version 2)
Quarter: 2014Q4

REPORT INFORMATION
  Report Type: Spontaneous
  Country: JP (occurrence: JP)
  Receive Date: 20141030
  Receipt Date: 20141030
  Transmission Date: 20150529
  Serious: Yes (Hospitalization)
  Sender: FDA-Public Use
  Company Number: PHHY2014JP114914

PATIENT
  Age: 65 Year
  Sex: Male

DRUGS (3)
  1. NILVADIPINE [Suspect]
     Active Substance: NILVADIPINE
     Indication: HYPERTENSION
     Route: 048
     Dates: start: 20140804, end: 20140818
  2. VALSARTAN SANDOZ [Suspect]
     Active Substance: VALSARTAN
     Indication: HYPERTENSION
     Route: 048
     Dates: start: 20140804, end: 20140818
  3. DIOVAN [Suspect]
     Active Substance: VALSARTAN
     Indication: HYPERTENSION
     Route: 065
     Dates: start: 20140819

REACTIONS (2)
  - Cerebral infarction [Unknown]
  - Blood pressure increased [Not Recovered/Not Resolved]

NARRATIVE: CASE EVENT DATE: 20140818
